FAERS Safety Report 5926821-1 (Version None)
Quarter: 2008Q4

REPORT INFORMATION
  Report Type: 
  Country: None (occurrence: None)
  Receive Date: 20081022
  Receipt Date: 20060520
  Transmission Date: 20090506
  Serious: Yes (Other)
  Sender: FDA-Public Use
  Company Number: US-WYE-H06416308

PATIENT
  Age: 14 Year
  Sex: Female

DRUGS (1)
  1. ROBITUSSIN DM [Suspect]
     Dosage: UNKNOWN
     Route: 048

REACTIONS (1)
  - CONVULSION [None]
